FAERS Safety Report 20904014 (Version 1)
Quarter: 2022Q2

REPORT INFORMATION
  Report Type: Spontaneous
  Country: GB (occurrence: GB)
  Receive Date: 20220602
  Receipt Date: 20220602
  Transmission Date: 20220721
  Serious: Yes (Other)
  Sender: FDA-Public Use
  Company Number: None

PATIENT
  Age: 48 Year
  Sex: Female
  Weight: 92.85 kg

DRUGS (27)
  1. TOCILIZUMAB [Suspect]
     Active Substance: TOCILIZUMAB
     Indication: Coronavirus infection
     Route: 042
     Dates: start: 20210217
  2. CALCIUM CARBONATE\CHOLECALCIFEROL [Concomitant]
     Active Substance: CALCIUM CARBONATE\CHOLECALCIFEROL
  3. ALENDRONIC ACID [Concomitant]
     Active Substance: ALENDRONIC ACID
  4. AMITRIPTYLINE [Concomitant]
     Active Substance: AMITRIPTYLINE
  5. ATORVASTATIN [Concomitant]
     Active Substance: ATORVASTATIN
  6. BISOPROLOL [Concomitant]
     Active Substance: BISOPROLOL
  7. CARBOCYSTEINE [Concomitant]
     Active Substance: CARBOCYSTEINE
  8. CLONIDINE [Concomitant]
     Active Substance: CLONIDINE
  9. COLCHICINE [Concomitant]
     Active Substance: COLCHICINE
     Indication: Clinical trial participant
  10. DALTEPARIN SODIUM [Concomitant]
     Active Substance: DALTEPARIN SODIUM
  11. DULOXETINE [Concomitant]
     Active Substance: DULOXETINE
  12. BUDESONIDE\FORMOTEROL [Concomitant]
     Active Substance: BUDESONIDE\FORMOTEROL
  13. FAMOTIDINE [Concomitant]
     Active Substance: FAMOTIDINE
  14. INSULIN HUMAN [Concomitant]
     Active Substance: INSULIN HUMAN
  15. INDAPAMIDE [Concomitant]
     Active Substance: INDAPAMIDE
  16. LANSOPRAZOLE [Concomitant]
     Active Substance: LANSOPRAZOLE
  17. MEBEVERINE [Concomitant]
     Active Substance: MEBEVERINE
  18. MESALAMINE [Concomitant]
     Active Substance: MESALAMINE
  19. ACETAMINOPHEN [Concomitant]
     Active Substance: ACETAMINOPHEN
  20. PEPPERMINT OIL [Concomitant]
     Active Substance: PEPPERMINT OIL
  21. PROCHLORPERAZINE [Concomitant]
     Active Substance: PROCHLORPERAZINE
  22. ALBUTEROL [Concomitant]
     Active Substance: ALBUTEROL
  23. SENNA [Concomitant]
     Active Substance: SENNA LEAF\SENNOSIDES\SENNOSIDES A AND B
  24. TRAMADOL [Concomitant]
     Active Substance: TRAMADOL
  25. ZOPICLONE [Concomitant]
     Active Substance: ZOPICLONE
  26. PREDNISOLONE [Concomitant]
     Active Substance: PREDNISOLONE
     Indication: Behcet^s syndrome
  27. AZATHIOPRINE [Concomitant]
     Active Substance: AZATHIOPRINE

REACTIONS (1)
  - Hypertransaminasaemia [Recovering/Resolving]

NARRATIVE: CASE EVENT DATE: 20210220
